FAERS Safety Report 7239449-0 (Version None)
Quarter: 2011Q1

REPORT INFORMATION
  Report Type: 
  Country: None (occurrence: None)
  Receive Date: 20110121
  Receipt Date: 20110103
  Transmission Date: 20110831
  Serious: Yes (Hospitalization)
  Sender: FDA-Public Use
  Company Number: US-BAYER-200928579NA

PATIENT
  Sex: Female
  Weight: 70 kg

DRUGS (8)
  1. YASMIN [Suspect]
     Indication: CONTRACEPTION
     Dosage: UNK
     Route: 048
     Dates: start: 20030826, end: 20080616
  2. OXYCET [Concomitant]
  3. YAZ [Suspect]
     Indication: CONTRACEPTION
  4. YASMIN [Suspect]
     Indication: PREMENSTRUAL SYNDROME
  5. ANTIBIOTICS [Concomitant]
     Route: 042
  6. PERCOCET [Concomitant]
  7. DROSPIRENONE AND ETHINYL ESTRADIOL [Suspect]
     Dosage: UNK
     Dates: start: 20080717, end: 20090424
  8. ZOLOFT [Concomitant]

REACTIONS (3)
  - ABDOMINAL PAIN UPPER [None]
  - CHOLECYSTITIS [None]
  - CHOLELITHIASIS [None]
